FAERS Safety Report 7313161-1 (Version None)
Quarter: 2011Q1

REPORT INFORMATION
  Report Type: 
  Country: None (occurrence: None)
  Receive Date: 20110225
  Receipt Date: 20110218
  Transmission Date: 20110831
  Serious: Yes (Life-Threatening, Hospitalization, Other)
  Sender: FDA-Public Use
  Company Number: US-ELI_LILLY_AND_COMPANY-US201101003918

PATIENT
  Age: 75 Year
  Sex: Female
  Weight: 104 kg

DRUGS (16)
  1. DIURETICS [Concomitant]
  2. EPOGEN [Concomitant]
     Dosage: UNK, 3/W
  3. JANUVIA [Concomitant]
  4. NARCAN [Concomitant]
  5. NITROSTAT [Concomitant]
     Dosage: UNK, AS NEEDED
  6. LANTUS [Concomitant]
     Dosage: UNK, EACH EVENING
  7. PRISTIQ [Concomitant]
     Indication: DEPRESSION
     Dates: end: 20101101
  8. PANCRELIPASE [Concomitant]
  9. NEXIUM [Concomitant]
     Indication: GASTROOESOPHAGEAL REFLUX DISEASE
     Dates: end: 20101101
  10. BYETTA [Suspect]
     Dosage: 10 UG, 2/D
     Route: 058
     Dates: start: 20101028, end: 20101114
  11. MICARDIS HCT [Concomitant]
     Dates: end: 20101101
  12. MULTIPLE VITAMIN [Concomitant]
     Dosage: UNK, DAILY (1/D)
  13. LIPITOR [Concomitant]
     Indication: HYPERTRIGLYCERIDAEMIA
     Dates: start: 20070201, end: 20101101
  14. AVANDIA [Concomitant]
     Indication: TYPE 2 DIABETES MELLITUS
     Dates: end: 20101101
  15. BYETTA [Suspect]
     Indication: TYPE 2 DIABETES MELLITUS
     Dosage: 5 UG, 2/D
     Route: 058
     Dates: start: 20101014, end: 20101028
  16. HEPARIN [Concomitant]
     Route: 058

REACTIONS (11)
  - BACTERIAL DISEASE CARRIER [None]
  - WEIGHT DECREASED [None]
  - CHOLELITHIASIS [None]
  - URINARY TRACT INFECTION [None]
  - PNEUMONIA [None]
  - ENTEROCOCCAL INFECTION [None]
  - SEPTIC SHOCK [None]
  - CANDIDIASIS [None]
  - PANCREATITIS NECROTISING [None]
  - RESPIRATORY FAILURE [None]
  - MULTI-ORGAN FAILURE [None]
